FAERS Safety Report 19462858 (Version 1)
Quarter: 2021Q2

REPORT INFORMATION
  Report Type: Spontaneous
  Country: US (occurrence: US)
  Receive Date: 20210625
  Receipt Date: 20210625
  Transmission Date: 20210717
  Serious: Yes (Other)
  Sender: FDA-Public Use
  Company Number: US-PFIZER INC-2021698728

PATIENT
  Age: 82 Year
  Sex: Female
  Weight: 67.59 kg

DRUGS (3)
  1. NIFIDINE [Concomitant]
     Dosage: 60MG, TWICE A DAY
  2. SPIRONOLACTONE. [Concomitant]
     Active Substance: SPIRONOLACTONE
  3. PREMARIN [Suspect]
     Active Substance: ESTROGENS, CONJUGATED
     Dosage: UNK
     Route: 067

REACTIONS (5)
  - Emotional disorder [Unknown]
  - Anxiety [Unknown]
  - Nausea [Unknown]
  - Blood pressure increased [Unknown]
  - Accidental exposure to product [Unknown]
